FAERS Safety Report 9231134 (Version 2)
Quarter: 2013Q2

REPORT INFORMATION
  Report Type: Spontaneous
  Country: GR (occurrence: GR)
  Receive Date: 20130415
  Receipt Date: 20130627
  Transmission Date: 20140414
  Serious: Yes (Hospitalization)
  Sender: FDA-Public Use
  Company Number: PHHY2013GR035342

PATIENT
  Age: 72 Year
  Sex: Female

DRUGS (6)
  1. VALACICLOVIR [Suspect]
     Indication: HERPES ZOSTER
     Dosage: 3 G, DAILY
  2. NIFEDIPINE [Concomitant]
     Dosage: 5 MG DAILY
  3. IRBESARTAN [Concomitant]
     Dosage: 150 MG DAILY
  4. CINACALCET [Concomitant]
     Dosage: 60 MG DAILY
  5. ATORVASTATIN [Concomitant]
     Dosage: 10 MG DAILY
  6. ALFACALCIDOL [Concomitant]
     Dosage: 1 UG, UNK

REACTIONS (14)
  - Feeling abnormal [Unknown]
  - Nightmare [Recovering/Resolving]
  - Pyrexia [Unknown]
  - Hypoaesthesia [Recovering/Resolving]
  - Dysaesthesia [Recovering/Resolving]
  - Disorientation [Recovered/Resolved]
  - Neurotoxicity [Recovering/Resolving]
  - Coordination abnormal [Recovering/Resolving]
  - Microangiopathy [Recovering/Resolving]
  - Hallucination, visual [Recovered/Resolved]
  - Confusional state [Recovering/Resolving]
  - Dysarthria [Recovered/Resolved]
  - Dizziness [Recovered/Resolved]
  - Agitation [Recovering/Resolving]
